FAERS Safety Report 8138719-1 (Version None)
Quarter: 2012Q1

REPORT INFORMATION
  Report Type: 
  Country: None (occurrence: None)
  Receive Date: 20120215
  Receipt Date: 20120209
  Transmission Date: 20120608
  Serious: Yes (Hospitalization)
  Sender: FDA-Public Use
  Company Number: US-GLAXOSMITHKLINE-A0919502A

PATIENT
  Age: 24 Year
  Sex: Male
  Weight: 54.4 kg

DRUGS (8)
  1. FUROSEMIDE [Concomitant]
  2. FLOLAN [Suspect]
     Indication: PULMONARY ARTERIAL HYPERTENSION
     Route: 042
     Dates: start: 20100716
  3. REVATIO [Concomitant]
  4. METOCLOPRAMIDE [Concomitant]
  5. MULTAQ [Concomitant]
  6. LISINOPRIL [Concomitant]
  7. DIGOXIN [Concomitant]
  8. LEXAPRO [Concomitant]

REACTIONS (2)
  - ARTHRALGIA [None]
  - CARDIAC ARREST [None]
